FAERS Safety Report 9729873 (Version 2)
Quarter: 2014Q1

REPORT INFORMATION
  Report Type: Spontaneous
  Country: NO (occurrence: NO)
  Receive Date: 20131204
  Receipt Date: 20140113
  Transmission Date: 20141002
  Serious: Yes (Death, Life-Threatening)
  Sender: FDA-Public Use
  Company Number: NO-009507513-1312NOR001133

PATIENT
  Age: 20 Year
  Sex: Female

DRUGS (21)
  1. REMERON [Suspect]
     Indication: DEPRESSION
     Dosage: UNK
     Route: 065
  2. SAROTEX [Suspect]
     Indication: DEPRESSION
     Dosage: UNK
     Route: 065
  3. LAMICTAL [Suspect]
     Indication: DEPRESSION
     Dosage: STRENGTH: 25 MG, 50 MG, 100 MG
     Route: 065
  4. ORFIRIL [Suspect]
     Indication: DEPRESSION
     Dosage: STRENGTH: 600 MG-1200 MG
  5. RIVOTRIL [Suspect]
     Indication: DEPRESSION
     Dosage: UNK
     Route: 065
  6. TRUXAL (CHLORPROTHIXENE HYDROCHLORIDE) [Suspect]
     Indication: PRODUCT USED FOR UNKNOWN INDICATION
     Route: 065
  7. NOBLIGAN [Suspect]
     Indication: DEPRESSION
     Dosage: STRENGTH: 50 MG-200 MG
     Route: 065
  8. IMOVANE [Suspect]
     Indication: DEPRESSION
     Dosage: FORM: UNKNOWN
     Route: 048
  9. PINEX FORTE [Suspect]
     Indication: DEPRESSION
     Dosage: STRENGTH: 500/30 MG AND PANDEINE
     Route: 065
  10. CIPRAMIL [Suspect]
     Indication: PRODUCT USED FOR UNKNOWN INDICATION
     Dosage: UNK
     Route: 065
  11. NOZINAN [Suspect]
     Indication: DEPRESSION
     Route: 065
  12. CATAPRESAN [Suspect]
     Indication: DEPRESSION
     Dosage: STRENGTH: 25 MG TO 50 MG
     Route: 065
  13. SEROQUEL [Suspect]
     Indication: DEPRESSION
     Route: 065
  14. VIVAL [Suspect]
     Indication: DEPRESSION
     Route: 065
  15. TRAMADOL HYDROCHLORIDE [Suspect]
     Indication: DEPRESSION
     Route: 065
  16. ATARAX (HYDROXYZINE HYDROCHLORIDE) [Suspect]
     Indication: DEPRESSION
     Route: 065
  17. CIPRALEX [Suspect]
     Indication: DEPRESSION
     Dosage: UNK
     Route: 065
  18. SOBRIL [Suspect]
     Indication: PRODUCT USED FOR UNKNOWN INDICATION
     Dosage: UNK
     Route: 065
  19. OXYNORM [Suspect]
     Indication: DEPRESSION
     Dosage: STRENGTH: 5 MG-10 MG
     Route: 065
  20. CYANOCOBALAMIN [Concomitant]
  21. DIACETYLMORPHINE [Concomitant]

REACTIONS (2)
  - Completed suicide [Fatal]
  - Self injurious behaviour [Unknown]
